FAERS Safety Report 8321022-4 (Version None)
Quarter: 2012Q2

REPORT INFORMATION
  Report Type: 
  Country: None (occurrence: None)
  Receive Date: 20120430
  Receipt Date: 20120426
  Transmission Date: 20120825
  Serious: Yes (Death)
  Sender: FDA-Public Use
  Company Number: PHHY2012BR036324

PATIENT
  Sex: Female

DRUGS (3)
  1. FEMARA [Concomitant]
     Indication: BREAST CANCER
  2. METFORMIN HCL [Suspect]
     Indication: DIABETES MELLITUS
     Dosage: UNK
     Route: 048
  3. NITRENDIPINO [Concomitant]
     Indication: HYPERTENSION

REACTIONS (1)
  - DEATH [None]
